FAERS Safety Report 22611245 (Version 2)
Quarter: 2023Q2

REPORT INFORMATION
  Report Type: Spontaneous
  Country: FR (occurrence: FR)
  Receive Date: 20230616
  Receipt Date: 20230622
  Transmission Date: 20230722
  Serious: Yes (Other)
  Sender: FDA-Public Use
  Company Number: FR-009507513-2306FRA007876

PATIENT
  Sex: Female

DRUGS (1)
  1. KEYTRUDA [Suspect]
     Active Substance: PEMBROLIZUMAB
     Indication: Breast cancer female
     Dosage: UNK

REACTIONS (5)
  - Neuropathy peripheral [Unknown]
  - Adrenal insufficiency [Unknown]
  - Immune-mediated hypophysitis [Unknown]
  - Asthenia [Unknown]
  - Asthenia [Unknown]
